FAERS Safety Report 6894327 (Version 5)
Quarter: 2016Q2

REPORT INFORMATION
  Report Type: Report from Study
  Country: JP (occurrence: JP)
  Receive Date: 20090128
  Receipt Date: 20160426
  Transmission Date: 20160815
  Serious: Yes (Death, Other)
  Sender: FDA-Public Use
  Company Number: PHHY2009JP02535

PATIENT
  Age: 6 Year
  Sex: Male
  Weight: 8 kg

DRUGS (8)
  1. NEORAL [Suspect]
     Active Substance: CYCLOSPORINE
     Indication: PROPHYLAXIS AGAINST TRANSPLANT REJECTION
     Dosage: 60 MG, QD
     Route: 048
     Dates: start: 20090107, end: 20090110
  2. CELLCEPT [Concomitant]
     Active Substance: MYCOPHENOLATE MOFETIL\MYCOPHENOLATE MOFETIL HYDROCHLORIDE
     Indication: LIVER TRANSPLANT REJECTION
     Dosage: 400 MG, QD
     Route: 048
     Dates: start: 20081125
  3. DENOSINE [Concomitant]
     Active Substance: GANCICLOVIR
     Indication: ANTIVIRAL PROPHYLAXIS
     Dosage: 40 MG, QD
     Route: 042
     Dates: start: 20090109
  4. SOLU-MEDROL [Concomitant]
     Active Substance: METHYLPREDNISOLONE SODIUM SUCCINATE
     Indication: LIVER TRANSPLANT REJECTION
     Dosage: 50 MG, QD
     Route: 042
     Dates: start: 20081201
  5. CERTICAN [Suspect]
     Active Substance: EVEROLIMUS
     Indication: LIVER TRANSPLANT
     Dosage: 0.5 MG, QD
     Route: 048
     Dates: start: 20090107, end: 20090109
  6. NEORAL [Suspect]
     Active Substance: CYCLOSPORINE
     Indication: LIVER TRANSPLANT
     Dosage: 100 MG, QD
     Route: 048
     Dates: start: 20070501, end: 20081130
  7. PROGRAF [Concomitant]
     Active Substance: TACROLIMUS\TACROLIMUS ANHYDROUS
     Indication: LIVER TRANSPLANT REJECTION
     Dosage: 1.6 MG, QD
     Route: 048
     Dates: start: 20090110, end: 20090120
  8. PROGRAF [Concomitant]
     Active Substance: TACROLIMUS\TACROLIMUS ANHYDROUS
     Indication: LIVER TRANSPLANT
     Dosage: 6 MG, QD
     Route: 048
     Dates: start: 20081201, end: 20090106

REACTIONS (8)
  - Multiple organ dysfunction syndrome [Fatal]
  - Renal failure [Fatal]
  - Respiratory failure [Fatal]
  - Gastrointestinal haemorrhage [Unknown]
  - Hepatic failure [Fatal]
  - Renal impairment [Fatal]
  - Liver transplant rejection [Fatal]
  - Product use issue [Unknown]

NARRATIVE: CASE EVENT DATE: 20081007
